FAERS Safety Report 6386892-8 (Version None)
Quarter: 2009Q4

REPORT INFORMATION
  Report Type: 
  Country: None (occurrence: None)
  Receive Date: 20091002
  Receipt Date: 20090728
  Transmission Date: 20100525
  Serious: Yes (Death, Other)
  Sender: FDA-Public Use
  Company Number: US-PFIZER INC-2009244274

PATIENT
  Sex: Male
  Weight: 71.214 kg

DRUGS (11)
  1. REVATIO [Suspect]
     Indication: PULMONARY HYPERTENSION
     Dosage: 20 MG, 3X/DAY
     Dates: start: 20090220, end: 20090720
  2. XANAX [Concomitant]
     Dosage: 0.5 MG, AS NEEDED
  3. ELAVIL [Concomitant]
     Dosage: 25 MG, 1X/DAY
  4. DIGOXIN [Concomitant]
     Dosage: 250 UG, 1X/DAY
  5. ENALAPRIL MALEATE [Concomitant]
     Dosage: 10 MG, 2X/DAY
  6. LASIX [Concomitant]
     Indication: RIGHT VENTRICULAR FAILURE
  7. METOLAZONE [Concomitant]
     Dosage: 40 MEQ, UNK
  8. POTASSIUM [Concomitant]
     Dosage: 40 MEQ, UNK
  9. SPIRIVA [Concomitant]
  10. WARFARIN [Concomitant]
     Indication: ATRIAL FIBRILLATION
  11. WARFARIN [Concomitant]
     Indication: MITRAL VALVE DISEASE

REACTIONS (5)
  - CONDITION AGGRAVATED [None]
  - HEPATORENAL FAILURE [None]
  - PULMONARY HYPERTENSION [None]
  - RENAL FAILURE ACUTE [None]
  - SEPSIS [None]
